FAERS Safety Report 7229325-1 (Version None)
Quarter: 2011Q1

REPORT INFORMATION
  Report Type: 
  Country: None (occurrence: None)
  Receive Date: 20110117
  Receipt Date: 20110113
  Transmission Date: 20110831
  Serious: Yes (Hospitalization, Other)
  Sender: FDA-Public Use
  Company Number: US-AMGEN-USASP2011001361

PATIENT

DRUGS (5)
  1. CYCLOPHOSPHAMIDE [Concomitant]
     Indication: IDIOPATHIC THROMBOCYTOPENIC PURPURA
     Dosage: UNK
     Dates: start: 19990825
  2. CORTICOSTEROIDS [Concomitant]
     Indication: IDIOPATHIC THROMBOCYTOPENIC PURPURA
  3. NPLATE [Suspect]
     Indication: IDIOPATHIC THROMBOCYTOPENIC PURPURA
     Dosage: UNK
     Dates: start: 20100505
  4. IVIGLOB-EX [Concomitant]
     Indication: IDIOPATHIC THROMBOCYTOPENIC PURPURA
  5. RITUXIMAB [Concomitant]
     Indication: IDIOPATHIC THROMBOCYTOPENIC PURPURA
     Dosage: UNK
     Dates: start: 20001011

REACTIONS (9)
  - PULMONARY EMBOLISM [None]
  - PNEUMONIA [None]
  - DYSPNOEA [None]
  - LUNG NEOPLASM [None]
  - CHEST PAIN [None]
  - CARDIOMEGALY [None]
  - DEEP VEIN THROMBOSIS [None]
  - ATELECTASIS [None]
  - PLEURAL EFFUSION [None]
